FAERS Safety Report 7321591-7 (Version None)
Quarter: 2011Q1

REPORT INFORMATION
  Report Type: 
  Country: None (occurrence: None)
  Receive Date: 20110228
  Receipt Date: 20100706
  Transmission Date: 20110831
  Serious: No
  Sender: FDA-Public Use
  Company Number: A0868672A

PATIENT
  Age: 55 Year
  Sex: Female

DRUGS (5)
  1. ALLEGRA [Concomitant]
  2. NEXIUM [Concomitant]
  3. ENALAPRIL [Concomitant]
  4. DEXTROMINE [Concomitant]
  5. VALACYCLOVIR [Suspect]
     Indication: GENITAL HERPES
     Route: 048
     Dates: start: 20100401, end: 20100430

REACTIONS (2)
  - DRUG INEFFECTIVE [None]
  - ORAL HERPES [None]
